FAERS Safety Report 7131971-0 (Version None)
Quarter: 2010Q4

REPORT INFORMATION
  Report Type: 
  Country: None (occurrence: None)
  Receive Date: 20101124
  Receipt Date: 20101124
  Transmission Date: 20110411
  Serious: Yes (Hospitalization)
  Sender: FDA-Public Use
  Company Number: None

PATIENT
  Age: 47 Year
  Sex: Male
  Weight: 70 kg

DRUGS (1)
  1. CEFEPIME [Suspect]
     Indication: CELLULITIS
     Dosage: 2GM Q12H IV
     Route: 042
     Dates: start: 20101109, end: 20101117

REACTIONS (1)
  - RASH ERYTHEMATOUS [None]
